FAERS Safety Report 5728805-5 (Version None)
Quarter: 2008Q2

REPORT INFORMATION
  Report Type: 
  Country: None (occurrence: None)
  Receive Date: 20080430
  Receipt Date: 20080421
  Transmission Date: 20081010
  Serious: Yes (Hospitalization)
  Sender: FDA-Public Use
  Company Number: 062-21880-08041505

PATIENT
  Sex: Male

DRUGS (4)
  1. REVLIMID [Suspect]
     Indication: DRUG USE FOR UNKNOWN INDICATION
     Dosage: 25 MG, DAILY, ORAL, 15 MG, DAILY, ORAL
     Route: 048
     Dates: end: 20080401
  2. REVLIMID [Suspect]
     Indication: DRUG USE FOR UNKNOWN INDICATION
     Dosage: 25 MG, DAILY, ORAL, 15 MG, DAILY, ORAL
     Route: 048
     Dates: start: 20080401
  3. DEXAMETHASONE TAB [Concomitant]
  4. FRAXIPARIN (HEPARIN-FRACTION, CALCIUM SALT) [Concomitant]

REACTIONS (2)
  - ABDOMINAL WALL HAEMORRHAGE [None]
  - TESTICULAR HAEMORRHAGE [None]
